FAERS Safety Report 12897011 (Version 1)
Quarter: 2016Q4

REPORT INFORMATION
  Report Type: Spontaneous
  Country: US (occurrence: US)
  Receive Date: 20161028
  Receipt Date: 20161028
  Transmission Date: 20170207
  Serious: Yes (Hospitalization)
  Sender: FDA-Public Use
  Company Number: None

PATIENT
  Age: 24 Year
  Sex: Female

DRUGS (6)
  1. CHLORPREP [Concomitant]
  2. FENTANYL EPIDURAL [Concomitant]
  3. MORPHINE PF WESTWARD [Suspect]
     Active Substance: MORPHINE SULFATE
     Indication: PAIN
     Dosage: ?          OTHER FREQUENCY:ONCE (2+2+1MG );?
     Route: 008
     Dates: start: 20161015, end: 20161015
  4. (MARCAINE) LIDOCAINE [Concomitant]
  5. BUPIVACAINE + FENTANYL [Concomitant]
  6. LIDOCAINE 2%+EPINEPHRINE [Suspect]
     Active Substance: EPINEPHRINE\LIDOCAINE HYDROCHLORIDE
     Indication: PAIN
     Dosage: ?          OTHER FREQUENCY:ONCE;?
     Route: 008
     Dates: start: 20161015, end: 20161015

REACTIONS (4)
  - Gait disturbance [None]
  - Urinary incontinence [None]
  - Muscular weakness [None]
  - Pain in extremity [None]

NARRATIVE: CASE EVENT DATE: 20161015
